FAERS Safety Report 8505846-6 (Version None)
Quarter: 2012Q3

REPORT INFORMATION
  Report Type: 
  Country: None (occurrence: None)
  Receive Date: 20120712
  Receipt Date: 20120703
  Transmission Date: 20120928
  Serious: Yes (Other)
  Sender: FDA-Public Use
  Company Number: CA-JNJFOC-20120702474

PATIENT
  Sex: Female
  Weight: 57.8 kg

DRUGS (7)
  1. REMICADE [Suspect]
     Indication: CROHN'S DISEASE
     Route: 042
     Dates: start: 20120620
  2. SATIVEX [Concomitant]
     Route: 065
  3. AVIANE-28 [Concomitant]
     Route: 065
  4. ATIVAN [Concomitant]
     Route: 065
  5. MELOXICAM [Concomitant]
     Route: 065
  6. REMICADE [Suspect]
     Dosage: SECOND INDUCTION DOSE
     Route: 042
     Dates: start: 20120703
  7. PANTOPRAZOLE [Concomitant]
     Route: 065

REACTIONS (6)
  - RASH [None]
  - DYSPNOEA [None]
  - NASAL CONGESTION [None]
  - EYE SWELLING [None]
  - INFUSION RELATED REACTION [None]
  - HYPOAESTHESIA [None]
